FAERS Safety Report 5234794-2 (Version None)
Quarter: 2007Q1

REPORT INFORMATION
  Report Type: 
  Country: None (occurrence: None)
  Receive Date: 20070209
  Receipt Date: 20070201
  Transmission Date: 20070707
  Serious: Yes (Other)
  Sender: FDA-Public Use
  Company Number: BR-PFIZER INC-2006152429

PATIENT
  Age: 23 Year
  Sex: Female

DRUGS (1)
  1. MISOPROSTOL [Suspect]
     Indication: ABORTION
     Route: 048

REACTIONS (2)
  - DRUG INEFFECTIVE [None]
  - PREMATURE SEPARATION OF PLACENTA [None]
